FAERS Safety Report 19419006 (Version 1)
Quarter: 2021Q2

REPORT INFORMATION
  Report Type: Spontaneous
  Country: US (occurrence: US)
  Receive Date: 20210615
  Receipt Date: 20210615
  Transmission Date: 20210717
  Serious: Yes (Hospitalization)
  Sender: FDA-Public Use
  Company Number: US-ASTRAZENECA-2021A515062

PATIENT
  Age: 25006 Day
  Sex: Female
  Weight: 108.9 kg

DRUGS (14)
  1. BIOTIN [Concomitant]
     Active Substance: BIOTIN
     Dosage: 1000MCG SOFT GEL TABLET ONCE A DAY
     Route: 048
  2. STREPTOCOCCUS LACTIS/LACTOBACILLUS ACIDOPHILUS [Concomitant]
     Dosage: 1 BILLION CFU CELGAP, TWO DAILY
  3. ESCIN\LEVOTHYROXINE [Concomitant]
     Active Substance: ESCIN\LEVOTHYROXINE
     Indication: HYPOTHYROIDISM
  4. VITAMIN D3 [Concomitant]
     Active Substance: CHOLECALCIFEROL
  5. OMEPRAZOLE. [Suspect]
     Active Substance: OMEPRAZOLE
     Route: 048
  6. PIOGLITAZONE. [Concomitant]
     Active Substance: PIOGLITAZONE
     Indication: TYPE 2 DIABETES MELLITUS
     Dates: start: 2020
  7. OMEGA?3 FISH OIL [Concomitant]
     Active Substance: FISH OIL\OMEGA-3 FATTY ACIDS
  8. PROTONIX [Suspect]
     Active Substance: PANTOPRAZOLE SODIUM
     Route: 048
     Dates: start: 1989
  9. LOSARTAN. [Concomitant]
     Active Substance: LOSARTAN
     Dosage: 50.0MG UNKNOWN
  10. BAYER ASPIRIN [Concomitant]
     Active Substance: ASPIRIN
     Route: 048
  11. PRILOSEC [Suspect]
     Active Substance: OMEPRAZOLE MAGNESIUM
     Route: 048
  12. LIPITOR [Concomitant]
     Active Substance: ATORVASTATIN CALCIUM
     Indication: BLOOD CHOLESTEROL ABNORMAL
  13. DILANTIN [Suspect]
     Active Substance: PHENYTOIN
     Indication: SEIZURE
     Route: 065
     Dates: start: 1986
  14. GABAPENTIN. [Concomitant]
     Active Substance: GABAPENTIN
     Indication: DIZZINESS

REACTIONS (5)
  - Hip fracture [Recovered/Resolved with Sequelae]
  - Chest pain [Not Recovered/Not Resolved]
  - Pain [Unknown]
  - Cerebral disorder [Unknown]
  - Dizziness [Unknown]

NARRATIVE: CASE EVENT DATE: 20200622
